FAERS Safety Report 4831794-9 (Version None)
Quarter: 2005Q4

REPORT INFORMATION
  Report Type: 
  Country: None (occurrence: None)
  Receive Date: 20051118
  Receipt Date: 20051025
  Transmission Date: 20060501
  Serious: Yes (Hospitalization, Other)
  Sender: FDA-Public Use
  Company Number: DEWYE825215JUN04

PATIENT
  Sex: Female

DRUGS (9)
  1. ENBREL [Suspect]
     Indication: DRUG USE FOR UNKNOWN INDICATION
     Dosage: DOSE AND FREQUENCY NOT SPECIFIED
     Route: 065
     Dates: start: 20040503, end: 20040517
  2. PREDNISOLONE [Suspect]
     Route: 048
     Dates: start: 20040501
  3. DORZOLAMIDE HYDROCHLORIDE + TIMOLOL MALEATE [Concomitant]
     Dates: start: 20000601
  4. FOSAMAX [Concomitant]
     Dates: start: 20000601
  5. CALCIUM CARBONATE/COLECALCIFEROL [Concomitant]
     Dates: start: 20000601
  6. L-THYROXIN [Concomitant]
     Dates: start: 19960101
  7. DELIX [Concomitant]
     Dates: start: 19990101
  8. RAMIPRIL [Concomitant]
     Dates: start: 19990101
  9. HYDROCHLOROTHIAZIDE [Concomitant]
     Dates: start: 19990101

REACTIONS (6)
  - BRAIN ABSCESS [None]
  - DRUG HYPERSENSITIVITY [None]
  - ENCEPHALITIS [None]
  - HEMIPLEGIA [None]
  - LISTERIOSIS [None]
  - SIMPLE PARTIAL SEIZURES [None]
